APPROVED DRUG PRODUCT: AZTREONAM
Active Ingredient: AZTREONAM
Strength: 2GM/VIAL
Dosage Form/Route: INJECTABLE;INJECTION
Application: A206517 | Product #002 | TE Code: AP
Applicant: HOSPIRA INC
Approved: Nov 8, 2021 | RLD: No | RS: No | Type: RX